FAERS Safety Report 5017868-0 (Version None)
Quarter: 2006Q2

REPORT INFORMATION
  Report Type: 
  Country: None (occurrence: None)
  Receive Date: 20060605
  Receipt Date: 20060220
  Transmission Date: 20061013
  Serious: Yes (Life-Threatening)
  Sender: FDA-Public Use
  Company Number: 2006AP00846

PATIENT
  Age: 15782 Day
  Sex: Male

DRUGS (8)
  1. ANAPEINE [Suspect]
     Indication: EPIDURAL ANAESTHESIA
     Route: 008
     Dates: start: 20060129, end: 20060129
  2. ANAPEINE [Suspect]
     Indication: PROCEDURAL PAIN
     Route: 008
     Dates: start: 20060129, end: 20060129
  3. ANAPEINE [Suspect]
     Dosage: ADMINISTERED CONTINUOUSLY
     Route: 008
     Dates: start: 20060129, end: 20060201
  4. ANAPEINE [Suspect]
     Dosage: ADMINISTERED CONTINUOUSLY
     Route: 008
     Dates: start: 20060129, end: 20060201
  5. XYLOCAINE [Suspect]
     Indication: EPIDURAL ANAESTHESIA
     Dosage: TEST DOSE
     Route: 008
     Dates: start: 20060129, end: 20060129
  6. XYLOCAINE [Suspect]
     Indication: PROCEDURAL PAIN
     Dosage: TEST DOSE
     Route: 008
     Dates: start: 20060129, end: 20060129
  7. XYLOCAINE [Suspect]
     Dosage: 15 ML + 7 ML GIVEN IN ONE HOUR
     Route: 008
     Dates: start: 20060129, end: 20060129
  8. XYLOCAINE [Suspect]
     Dosage: 15 ML + 7 ML GIVEN IN ONE HOUR
     Route: 008
     Dates: start: 20060129, end: 20060129

REACTIONS (2)
  - ADAMS-STOKES SYNDROME [None]
  - SINUS BRADYCARDIA [None]
